FAERS Safety Report 23343194 (Version 1)
Quarter: 2023Q4

REPORT INFORMATION
  Report Type: Spontaneous
  Country: US (occurrence: US)
  Receive Date: 20231227
  Receipt Date: 20231227
  Transmission Date: 20240110
  Serious: No
  Sender: FDA-Public Use
  Company Number: US-ABBVIE-5553998

PATIENT
  Sex: Female
  Weight: 65.77 kg

DRUGS (3)
  1. RESTASIS [Suspect]
     Active Substance: CYCLOSPORINE
     Indication: Dry eye
     Dosage: UNKNOWN
     Route: 047
     Dates: start: 2012, end: 2012
  2. RESTASIS [Suspect]
     Active Substance: CYCLOSPORINE
     Dosage: UNKNOWN
     Route: 047
     Dates: start: 2001, end: 2001
  3. XIIDRA [Concomitant]
     Active Substance: LIFITEGRAST
     Indication: Dry eye

REACTIONS (4)
  - Ocular hyperaemia [Recovered/Resolved]
  - Eye pain [Recovered/Resolved]
  - Eye swelling [Recovered/Resolved]
  - Eye irritation [Recovered/Resolved]

NARRATIVE: CASE EVENT DATE: 20010101
